FAERS Safety Report 12838132 (Version 1)
Quarter: 2016Q4

REPORT INFORMATION
  Report Type: Spontaneous
  Country: US (occurrence: US)
  Receive Date: 20161012
  Receipt Date: 20161012
  Transmission Date: 20170207
  Serious: Yes (Hospitalization)
  Sender: FDA-Public Use
  Company Number: US-ROCHE-1838791

PATIENT
  Sex: Female
  Weight: 54.43 kg

DRUGS (8)
  1. COENZYME Q10 [Concomitant]
     Active Substance: UBIDECARENONE
     Route: 065
     Dates: start: 2015
  2. BIOTIN [Concomitant]
     Active Substance: BIOTIN
     Route: 065
     Dates: start: 2015
  3. KLONOPIN [Suspect]
     Active Substance: CLONAZEPAM
     Indication: NEURALGIA
     Dosage: 2 TABLETS A DAY
     Route: 048
     Dates: start: 2013
  4. DICLOFENAC SODIUM. [Concomitant]
     Active Substance: DICLOFENAC SODIUM
     Indication: EXOSTOSIS
     Dosage: USED WHEN FOOT BOTHERS
     Route: 065
     Dates: start: 2011, end: 2011
  5. RHINOCORT [Concomitant]
     Active Substance: BUDESONIDE
     Route: 045
     Dates: start: 2015
  6. LYRICA [Interacting]
     Active Substance: PREGABALIN
     Indication: NEURALGIA
     Route: 065
     Dates: start: 2013
  7. OMEGA 3 [Concomitant]
     Active Substance: OMEGA-3 FATTY ACIDS
     Indication: OSTEOPENIA
     Route: 065
     Dates: start: 2015
  8. CURAMED [Concomitant]
     Indication: INFLAMMATION
     Route: 065
     Dates: start: 2016

REACTIONS (5)
  - Memory impairment [Recovering/Resolving]
  - Drug interaction [Unknown]
  - Oedema peripheral [Recovering/Resolving]
  - Swelling [Recovering/Resolving]
  - Intentional product use issue [Unknown]

NARRATIVE: CASE EVENT DATE: 2013
